FAERS Safety Report 15435672 (Version 1)
Quarter: 2018Q3

REPORT INFORMATION
  Report Type: Spontaneous
  Country: KR (occurrence: KR)
  Receive Date: 20180927
  Receipt Date: 20180927
  Transmission Date: 20181010
  Serious: Yes (Hospitalization)
  Sender: FDA-Public Use
  Company Number: KR-JNJFOC-20180920234

PATIENT
  Age: 74 Year
  Sex: Female

DRUGS (9)
  1. CYCLOPHOSPHAMIDE. [Suspect]
     Active Substance: CYCLOPHOSPHAMIDE
     Indication: BREAST CANCER
     Route: 065
     Dates: start: 20170531, end: 20170819
  2. NEXIUM [Concomitant]
     Active Substance: ESOMEPRAZOLE MAGNESIUM
     Route: 065
  3. PERINDOPRIL [Concomitant]
     Active Substance: PERINDOPRIL
     Route: 065
  4. DIABEX [Concomitant]
     Active Substance: METFORMIN HYDROCHLORIDE
     Route: 065
  5. LIPITOR [Concomitant]
     Active Substance: ATORVASTATIN CALCIUM
     Route: 065
  6. NORVASC [Concomitant]
     Active Substance: AMLODIPINE BESYLATE
     Route: 065
  7. GASLON [Concomitant]
     Active Substance: IRSOGLADINE MALEATE
     Route: 065
  8. DOXORUBICIN HYDROCHLORIDE. [Suspect]
     Active Substance: DOXORUBICIN HYDROCHLORIDE
     Indication: BREAST CANCER
     Route: 065
     Dates: start: 20170531, end: 20170819
  9. DINEW [Concomitant]
     Route: 065

REACTIONS (25)
  - Feeling abnormal [Unknown]
  - Pyrexia [Unknown]
  - Feeling hot [Unknown]
  - Hyperkeratosis [Unknown]
  - Tenderness [Unknown]
  - Asthenia [Unknown]
  - Alopecia [Unknown]
  - Constipation [Unknown]
  - Pain [Unknown]
  - Arthritis [Unknown]
  - Hypoaesthesia [Unknown]
  - Somnolence [Unknown]
  - Jaundice [Unknown]
  - Diarrhoea [Recovered/Resolved]
  - Nausea [Recovered/Resolved]
  - Insomnia [Unknown]
  - Fatigue [Unknown]
  - Decreased appetite [Recovered/Resolved]
  - Pruritus [Unknown]
  - Erythema [Unknown]
  - Vomiting [Unknown]
  - Chills [Unknown]
  - Poor quality sleep [Unknown]
  - Discomfort [Unknown]
  - Dyspepsia [Unknown]
